FAERS Safety Report 10550837 (Version 1)
Quarter: 2014Q4

REPORT INFORMATION
  Report Type: Spontaneous
  Country: US (occurrence: None)
  Receive Date: 20141028
  Receipt Date: 20141028
  Transmission Date: 20150529
  Serious: Yes (Death)
  Sender: FDA-Public Use
  Company Number: None

PATIENT
  Age: 69 Year
  Sex: Male
  Weight: 66.4 kg

DRUGS (4)
  1. IOPROMIDE [Suspect]
     Active Substance: IOPROMIDE
     Indication: UPPER RESPIRATORY TRACT INFECTION
     Dates: start: 20141015, end: 20141015
  2. IOPROMIDE [Suspect]
     Active Substance: IOPROMIDE
     Indication: CHRONIC OBSTRUCTIVE PULMONARY DISEASE
     Dates: start: 20141015, end: 20141015
  3. IOPROMIDE [Suspect]
     Active Substance: IOPROMIDE
     Indication: X-RAY ABNORMAL
     Dates: start: 20141015, end: 20141015
  4. IOPROMIDE [Suspect]
     Active Substance: IOPROMIDE
     Indication: COMPUTERISED TOMOGRAM
     Dates: start: 20141015, end: 20141015

REACTIONS (2)
  - Dyspnoea [None]
  - Respiratory depression [None]

NARRATIVE: CASE EVENT DATE: 20141015
